FAERS Safety Report 6383682-7 (Version None)
Quarter: 2009Q4

REPORT INFORMATION
  Report Type: 
  Country: None (occurrence: None)
  Receive Date: 20091001
  Receipt Date: 20090922
  Transmission Date: 20100525
  Serious: Yes (Hospitalization)
  Sender: FDA-Public Use
  Company Number: FR-ELI_LILLY_AND_COMPANY-FR200907006430

PATIENT
  Sex: Female

DRUGS (2)
  1. GEMZAR [Suspect]
     Dosage: UNK, UNKNOWN
     Route: 042
     Dates: start: 20090101
  2. INNOHEP [Concomitant]
     Indication: THROMBOCYTOPENIA
     Dosage: UNK, UNKNOWN
     Route: 058
     Dates: start: 20090502, end: 20090514

REACTIONS (6)
  - BLOOD ALKALINE PHOSPHATASE INCREASED [None]
  - DEEP VEIN THROMBOSIS [None]
  - GAMMA-GLUTAMYLTRANSFERASE INCREASED [None]
  - HEPARIN-INDUCED THROMBOCYTOPENIA [None]
  - INTERNATIONAL NORMALISED RATIO INCREASED [None]
  - THROMBOPHLEBITIS SUPERFICIAL [None]
